FAERS Safety Report 22116336 (Version 1)
Quarter: 2023Q1

REPORT INFORMATION
  Report Type: Spontaneous
  Country: CN (occurrence: CN)
  Receive Date: 20230320
  Receipt Date: 20230320
  Transmission Date: 20230417
  Serious: Yes (Other)
  Sender: FDA-Public Use
  Company Number: CN-BoehringerIngelheim-2023-BI-225485

PATIENT
  Age: 45 Year
  Sex: Female

DRUGS (8)
  1. AFATINIB [Suspect]
     Active Substance: AFATINIB
     Indication: Non-small cell lung cancer
     Dates: start: 202201, end: 20220428
  2. AFATINIB [Suspect]
     Active Substance: AFATINIB
     Indication: EGFR gene mutation
  3. OSIMERTINIB [Concomitant]
     Active Substance: OSIMERTINIB
     Indication: Non-small cell lung cancer
     Dates: start: 202103
  4. OSIMERTINIB [Concomitant]
     Active Substance: OSIMERTINIB
     Indication: EGFR gene mutation
  5. pemetrexed and carboplatin [Concomitant]
     Indication: Non-small cell lung cancer
     Dates: start: 202103
  6. pemetrexed and carboplatin [Concomitant]
     Indication: EGFR gene mutation
  7. gemcitabine and bevacizumab [Concomitant]
     Indication: Non-small cell lung cancer
     Dates: start: 202103
  8. gemcitabine and bevacizumab [Concomitant]
     Indication: EGFR gene mutation

REACTIONS (2)
  - Malignant neoplasm progression [Recovering/Resolving]
  - Metastases to central nervous system [Recovering/Resolving]

NARRATIVE: CASE EVENT DATE: 20220319
